FAERS Safety Report 11381667 (Version 1)
Quarter: 2015Q3

REPORT INFORMATION
  Report Type: Spontaneous
  Country: US (occurrence: US)
  Receive Date: 20150814
  Receipt Date: 20150814
  Transmission Date: 20151125
  Serious: No
  Sender: FDA-Public Use
  Company Number: US-GALDERMA-US15002316

PATIENT
  Age: 34 Year
  Sex: Female

DRUGS (7)
  1. DIFFERIN [Suspect]
     Active Substance: ADAPALENE
     Indication: ACNE
     Dosage: 0.3%
     Route: 061
     Dates: start: 201504
  2. KLARON [Suspect]
     Active Substance: SULFACETAMIDE SODIUM
     Indication: ACNE
     Route: 061
     Dates: start: 201504
  3. SULFUR MASK [Concomitant]
     Active Substance: SULFUR
     Route: 061
  4. SILVER SOAP CLEANSER [Concomitant]
     Indication: THERAPEUTIC SKIN CARE TOPICAL
     Route: 061
  5. SKINCEUTICALS LHA CLEANSER CONTAINING SALICYLIC ACID [Concomitant]
     Indication: THERAPEUTIC SKIN CARE TOPICAL
     Route: 061
  6. UNKNOWN MOISTURIZER [Concomitant]
     Route: 061
     Dates: start: 2014
  7. NEUTROGENA OIL FREE MOISTURIZER WITH SUNSCREEN [Concomitant]
     Route: 061

REACTIONS (2)
  - Erythema [Not Recovered/Not Resolved]
  - Skin exfoliation [Not Recovered/Not Resolved]

NARRATIVE: CASE EVENT DATE: 201504
